FAERS Safety Report 11863837 (Version 6)
Quarter: 2016Q4

REPORT INFORMATION
  Report Type: Report from Study
  Country: US (occurrence: US)
  Receive Date: 20151223
  Receipt Date: 20161207
  Transmission Date: 20170206
  Serious: Yes (Hospitalization, Other)
  Sender: FDA-Public Use
  Company Number: US-BAYER-2015-481983

PATIENT
  Age: 63 Year
  Sex: Male

DRUGS (2)
  1. STIVARGA [Suspect]
     Active Substance: REGORAFENIB
     Indication: RECTAL CANCER
     Dosage: 120 MG, QD
     Route: 048
     Dates: start: 20151208
  2. STIVARGA [Suspect]
     Active Substance: REGORAFENIB
     Indication: RECTAL CANCER
     Dosage: 160 MG, QD
     Route: 048
     Dates: start: 20151117, end: 20151119

REACTIONS (6)
  - Blood pressure increased [None]
  - Pancreatitis [Recovered/Resolved]
  - Drug ineffective [None]
  - Dry skin [Recovered/Resolved]
  - Oxygen saturation decreased [None]
  - Rectal cancer [None]

NARRATIVE: CASE EVENT DATE: 2015
